FAERS Safety Report 9423834 (Version 1)
Quarter: 2013Q3

REPORT INFORMATION
  Report Type: Spontaneous
  Country: US (occurrence: US)
  Receive Date: 20130729
  Receipt Date: 20130729
  Transmission Date: 20140515
  Serious: No
  Sender: FDA-Public Use
  Company Number: US-009507513-1307USA014615

PATIENT
  Age: 21 Year
  Sex: Female

DRUGS (1)
  1. IMPLANON [Suspect]
     Dosage: UNK
     Route: 059
     Dates: start: 20120211

REACTIONS (6)
  - Polymenorrhoea [Recovered/Resolved]
  - Menstruation normal [Recovered/Resolved]
  - Menorrhagia [Recovering/Resolving]
  - Migraine [Recovering/Resolving]
  - Dysmenorrhoea [Recovering/Resolving]
  - Weight increased [Recovering/Resolving]
